FAERS Safety Report 8594243-3 (Version None)
Quarter: 2012Q3

REPORT INFORMATION
  Report Type: 
  Country: None (occurrence: None)
  Receive Date: 20120814
  Receipt Date: 20120803
  Transmission Date: 20120928
  Serious: Yes (Hospitalization, Disabling)
  Sender: FDA-Public Use
  Company Number: NO-AMGEN-NORSP2011017040

PATIENT
  Age: 74 Year
  Sex: Female

DRUGS (11)
  1. BETOLVEX                           /00056201/ [Concomitant]
     Dosage: UNK
     Dates: start: 20110210
  2. DIOVAN [Concomitant]
     Dosage: 160 MG, QD
     Dates: start: 20120501
  3. FLUTICASONE PROPIONATE/SALMETEROL [Concomitant]
     Indication: LUNG DISORDER
     Dosage: UNK UNK, BID
     Route: 055
  4. PLAVIX [Concomitant]
     Dosage: UNK
     Dates: start: 20120501, end: 20120501
  5. PROLIA [Suspect]
     Indication: OSTEOPOROSIS POSTMENOPAUSAL
     Dosage: 60 MG, Q6MO
     Route: 058
     Dates: start: 20110303
  6. CALCIGRAN FORTE [Concomitant]
  7. TRAMADOL HCL [Concomitant]
     Dosage: 50 MG, UNK
  8. IMOVANE [Concomitant]
     Dosage: 7.5 MG, UNK
     Route: 048
     Dates: start: 20110910
  9. SPIRIVA [Concomitant]
     Dosage: 18 MUG, UNK
     Route: 055
  10. VENTOLIN [Concomitant]
     Dosage: UNK UNK, QD
     Route: 055
  11. NORVASC [Concomitant]
     Dosage: 10 MG, UNK

REACTIONS (30)
  - TRANSIENT ISCHAEMIC ATTACK [None]
  - ACTIVITIES OF DAILY LIVING IMPAIRED [None]
  - VISION BLURRED [None]
  - INAPPROPRIATE ANTIDIURETIC HORMONE SECRETION [None]
  - PARAESTHESIA [None]
  - POLLAKIURIA [None]
  - WEIGHT DECREASED [None]
  - EYE PAIN [None]
  - PRURITUS [None]
  - PAIN IN EXTREMITY [None]
  - ABDOMINAL PAIN UPPER [None]
  - NAUSEA [None]
  - SKIN DISCOLOURATION [None]
  - UPPER RESPIRATORY TRACT INFECTION [None]
  - DEPRESSION [None]
  - RASH [None]
  - PYREXIA [None]
  - FLUSHING [None]
  - PHARYNGITIS [None]
  - DIARRHOEA [None]
  - HEADACHE [None]
  - ARTHROPOD BITE [None]
  - MYALGIA [None]
  - HYPOAESTHESIA [None]
  - BONE PAIN [None]
  - FATIGUE [None]
  - TYPE III IMMUNE COMPLEX MEDIATED REACTION [None]
  - MOUTH ULCERATION [None]
  - URINARY INCONTINENCE [None]
  - SKIN HAEMORRHAGE [None]
